FAERS Safety Report 5209880-3 (Version None)
Quarter: 2007Q1

REPORT INFORMATION
  Report Type: 
  Country: None (occurrence: None)
  Receive Date: 20070110
  Receipt Date: 20070105
  Transmission Date: 20070707
  Serious: Yes (Hospitalization)
  Sender: FDA-Public Use
  Company Number: 200610327BBE

PATIENT
  Age: 24 Year
  Sex: Male

DRUGS (9)
  1. IMMUNE GLOBULIN INTRAVENOUS (HUMAN) [Suspect]
     Indication: IDIOPATHIC THROMBOCYTOPENIC PURPURA
     Dosage: 30 G, TOTAL DAILY, INTRAVENOUS
     Route: 042
  2. RED BLOOD CELLS [Concomitant]
  3. SODIUM NITROPRUSSIDE [Concomitant]
  4. NITROGLYCERIN [Concomitant]
  5. LABETALOL HCL [Concomitant]
  6. ATENOLOL [Concomitant]
  7. AMLODIPINE [Concomitant]
  8. CAPTOPRIL [Concomitant]
  9. METHYLPREDNISOLONE 16MG TAB [Concomitant]

REACTIONS (7)
  - BLOOD CREATININE INCREASED [None]
  - COMA [None]
  - PARALYSIS FLACCID [None]
  - PYREXIA [None]
  - QUADRIPLEGIA [None]
  - REVERSIBLE POSTERIOR LEUKOENCEPHALOPATHY SYNDROME [None]
  - THROMBOCYTOPENIA [None]
